FAERS Safety Report 18918809 (Version 2)
Quarter: 2021Q1

REPORT INFORMATION
  Report Type: Other
  Country: GB (occurrence: GB)
  Receive Date: 20210220
  Receipt Date: 20210327
  Transmission Date: 20210420
  Serious: Yes (Other)
  Sender: FDA-Public Use
  Company Number: GB-ROCHE-2769763

PATIENT
  Age: 78 Year
  Sex: Male

DRUGS (1)
  1. ESBRIET [Suspect]
     Active Substance: PIRFENIDONE
     Indication: IDIOPATHIC PULMONARY FIBROSIS
     Dosage: 3 TABLETS TO BE TAKEN 3 TIMES A DAY
     Route: 048
     Dates: start: 20201008, end: 20210204

REACTIONS (1)
  - Gastrointestinal disorder [Unknown]
